FAERS Safety Report 14234387 (Version 3)
Quarter: 2017Q4

REPORT INFORMATION
  Report Type: Spontaneous
  Country: DE (occurrence: DE)
  Receive Date: 20171129
  Receipt Date: 20171201
  Transmission Date: 20180321
  Serious: Yes (Hospitalization, Other)
  Sender: FDA-Public Use
  Company Number: DE-ABBVIE-17K-062-2176730-00

PATIENT
  Age: 33 Year
  Sex: Female

DRUGS (1)
  1. ADALIMUMAB [Suspect]
     Active Substance: ADALIMUMAB
     Indication: UVEITIS
     Route: 058
     Dates: start: 2013, end: 201612

REACTIONS (19)
  - Decreased vibratory sense [Unknown]
  - Mitral valve prolapse [Unknown]
  - Haematoma [Unknown]
  - Tinea pedis [Unknown]
  - Pleocytosis [Unknown]
  - Ovarian cyst [Unknown]
  - Hypergammaglobulinaemia [Unknown]
  - Immune-mediated adverse reaction [Unknown]
  - Pruritus [Unknown]
  - Dry skin [Unknown]
  - Multiple sclerosis relapse [Unknown]
  - Uterine leiomyoma [Unknown]
  - Intervertebral disc protrusion [Unknown]
  - Pain [Unknown]
  - Injury [Unknown]
  - Joint ankylosis [Unknown]
  - Bone marrow disorder [Unknown]
  - Erythema nodosum [Unknown]
  - Nervous system disorder [Unknown]

NARRATIVE: CASE EVENT DATE: 201610
